FAERS Safety Report 6923155-3 (Version None)
Quarter: 2010Q3

REPORT INFORMATION
  Report Type: 
  Country: None (occurrence: None)
  Receive Date: 20100813
  Receipt Date: 20100805
  Transmission Date: 20110219
  Serious: Yes (Other)
  Sender: FDA-Public Use
  Company Number: US-ROCHE-704898

PATIENT
  Sex: Male
  Weight: 69.9 kg

DRUGS (4)
  1. CAPECITABINE [Suspect]
     Indication: COLORECTAL CANCER
     Dosage: 1500 MG BID AM/PM X 14 DAYS; ROUTE: MOUTH
     Route: 048
     Dates: start: 20090109
  2. FLUOROURACIL [Suspect]
     Indication: RECTAL CANCER
     Dosage: FREQUENCY: 5/4 DAYS FOR 2 CYCLES.
     Route: 042
     Dates: start: 20060828, end: 20060911
  3. FOLINIC ACID [Suspect]
     Indication: RECTAL CANCER
     Dosage: FREQUENCY: 5/4 DAYS FOR 2 CYCLES.
     Route: 042
     Dates: start: 20060828, end: 20060911
  4. OXALIPLATIN [Suspect]
     Indication: RECTAL CANCER
     Dosage: FREQUENCY: 5/4 DAYS FOR 2 CYCLES.
     Route: 042
     Dates: start: 20060828, end: 20060911

REACTIONS (2)
  - DEAFNESS [None]
  - HYPOAESTHESIA [None]
